FAERS Safety Report 6069053-1 (Version None)
Quarter: 2009Q1

REPORT INFORMATION
  Report Type: 
  Country: None (occurrence: None)
  Receive Date: 20090206
  Receipt Date: 20090130
  Transmission Date: 20090719
  Serious: Yes (Hospitalization)
  Sender: FDA-Public Use
  Company Number: FR-PURDUE-GBR_2009_0004811

PATIENT
  Age: 76 Year
  Sex: Female

DRUGS (10)
  1. MORPHINE SULFATE [Suspect]
     Indication: HEREDITARY NON-POLYPOSIS COLORECTAL CANCER SYNDROME
     Dosage: 30 MG, BID
     Route: 048
     Dates: start: 20081215, end: 20081231
  2. MORPHINE SULFATE [Suspect]
     Dosage: 20 MG, BID
     Route: 048
  3. ATARAX [Suspect]
     Indication: DRUG USE FOR UNKNOWN INDICATION
     Dosage: 25 MG, DAILY
     Route: 048
     Dates: end: 20081231
  4. ROHYPNOL [Suspect]
     Indication: DRUG USE FOR UNKNOWN INDICATION
     Dosage: .5 MG, DAILY
     Route: 048
     Dates: end: 20081231
  5. FLECAINE [Concomitant]
     Indication: DRUG USE FOR UNKNOWN INDICATION
     Dosage: 100 MG, DAILY
     Route: 065
  6. HYDROCORTISONE [Concomitant]
     Indication: DRUG USE FOR UNKNOWN INDICATION
     Dosage: 20 MG, DAILY
     Route: 065
  7. ARIMIDEX [Concomitant]
     Indication: DRUG USE FOR UNKNOWN INDICATION
     Dosage: 1 DF, DAILY
     Route: 048
  8. DEROXAT [Concomitant]
     Indication: DRUG USE FOR UNKNOWN INDICATION
     Dosage: 1 DF, DAILY
     Route: 048
  9. FOSAVANCE [Concomitant]
     Indication: DRUG USE FOR UNKNOWN INDICATION
     Dosage: 70 MG, 1/WEEK
     Route: 048
  10. SOTALEX [Concomitant]
     Indication: DRUG USE FOR UNKNOWN INDICATION
     Dosage: 80 MG, DAILY
     Route: 048

REACTIONS (2)
  - CONFUSIONAL STATE [None]
  - FALL [None]
